FAERS Safety Report 5428009-X (Version None)
Quarter: 2007Q3

REPORT INFORMATION
  Report Type: 
  Country: None (occurrence: None)
  Receive Date: 20070828
  Receipt Date: 20070820
  Transmission Date: 20080115
  Serious: Yes (Other)
  Sender: FDA-Public Use
  Company Number: US-SANOFI-SYNTHELABO-A03200705219

PATIENT
  Sex: Male
  Weight: 57.2 kg

DRUGS (3)
  1. AMBIEN CR [Suspect]
     Indication: INSOMNIA
     Route: 048
     Dates: start: 20070816, end: 20070801
  2. DIURETICS [Concomitant]
     Dosage: UNK
     Route: 065
  3. HEART MEDICATION [Concomitant]
     Dosage: UNK
     Route: 065

REACTIONS (3)
  - DRUG INEFFECTIVE [None]
  - LOSS OF CONSCIOUSNESS [None]
  - ROAD TRAFFIC ACCIDENT [None]
